FAERS Safety Report 6817628-1 (Version None)
Quarter: 2010Q3

REPORT INFORMATION
  Report Type: 
  Country: None (occurrence: None)
  Receive Date: 20100706
  Receipt Date: 20100625
  Transmission Date: 20110219
  Serious: Yes (Other)
  Sender: FDA-Public Use
  Company Number: US-JNJFOC-20100601083

PATIENT
  Sex: Female
  Weight: 63.3 kg

DRUGS (16)
  1. REMICADE [Suspect]
     Indication: RHEUMATOID ARTHRITIS
     Route: 042
  2. REMICADE [Suspect]
     Route: 042
  3. METHOTREXATE [Concomitant]
  4. PREDNISONE TAB [Concomitant]
  5. ASPIRIN [Concomitant]
  6. ESTRADIOL [Concomitant]
  7. HYDROCHLOROTHIAZIDE [Concomitant]
  8. XANAX [Concomitant]
  9. ZOCOR [Concomitant]
  10. ZOLOFT [Concomitant]
  11. FISH OIL [Concomitant]
  12. HYDROCODONE BITARTRATE [Concomitant]
  13. VITAMIN D [Concomitant]
  14. FOLIC [Concomitant]
  15. MELLARIL [Concomitant]
  16. PRILOSEC [Concomitant]

REACTIONS (1)
  - MALIGNANT MELANOMA [None]
